FAERS Safety Report 9790403 (Version 1)
Quarter: 2013Q4

REPORT INFORMATION
  Report Type: Spontaneous
  Country: US (occurrence: US)
  Receive Date: 20131231
  Receipt Date: 20131231
  Transmission Date: 20140711
  Serious: Yes (Other)
  Sender: FDA-Public Use
  Company Number: US-BAXTER-2013BAX053293

PATIENT
  Age: 28 Year
  Sex: Female

DRUGS (4)
  1. CYTOXAN (CYCLOPHOSPHAMIDE FOR INJECTION, USP) 100 MG VIAL (LYOPHILIZE [Suspect]
     Indication: PRODUCT USED FOR UNKNOWN INDICATION
     Dosage: 6 COURSES
     Route: 065
     Dates: start: 201101, end: 201106
  2. CELLCEPT [Suspect]
     Indication: NEPHRITIS
     Route: 065
     Dates: start: 200912, end: 201101
  3. CELLCEPT [Suspect]
     Route: 065
     Dates: start: 201106
  4. COUMADIN [Concomitant]
     Indication: ANTIPHOSPHOLIPID ANTIBODIES
     Route: 065

REACTIONS (2)
  - Maternal exposure before pregnancy [Recovered/Resolved]
  - Abortion spontaneous [Recovered/Resolved]
